FAERS Safety Report 5322395-7 (Version None)
Quarter: 2007Q2

REPORT INFORMATION
  Report Type: 
  Country: None (occurrence: None)
  Receive Date: 20070511
  Receipt Date: 20070502
  Transmission Date: 20071010
  Serious: Yes (Hospitalization, Other)
  Sender: FDA-Public Use
  Company Number: US-ELI_LILLY_AND_COMPANY-US200705000435

PATIENT
  Sex: Female

DRUGS (1)
  1. FORTEO [Suspect]
     Dosage: UNK, UNK
     Dates: start: 20060101

REACTIONS (7)
  - ANKLE FRACTURE [None]
  - BONE DISORDER [None]
  - CARDIAC FAILURE CONGESTIVE [None]
  - FALL [None]
  - LIMB CRUSHING INJURY [None]
  - LOWER LIMB FRACTURE [None]
  - WRIST FRACTURE [None]
